FAERS Safety Report 5992009-1 (Version None)
Quarter: 2008Q4

REPORT INFORMATION
  Report Type: 
  Country: None (occurrence: None)
  Receive Date: 20081211
  Receipt Date: 20081205
  Transmission Date: 20090506
  Serious: Yes (Other)
  Sender: FDA-Public Use
  Company Number: GR-ROXANE LABORATORIES, INC.-2008-RO-00365RO

PATIENT
  Age: 53 Year
  Sex: Male

DRUGS (5)
  1. CLARITHROMYCIN [Suspect]
     Indication: BRONCHITIS
     Dosage: 1000MG
  2. DIAZEPAM [Suspect]
     Indication: ACUTE PSYCHOSIS
  3. CHLORPROMAZINE [Suspect]
     Indication: ACUTE PSYCHOSIS
  4. HALOPERIDOL [Suspect]
     Indication: ACUTE PSYCHOSIS
  5. CEPHALOSPORIN [Concomitant]
     Indication: BRONCHITIS

REACTIONS (4)
  - ACUTE PSYCHOSIS [None]
  - CEPHALHAEMATOMA [None]
  - DRUG INEFFECTIVE [None]
  - SOMNOLENCE [None]
